FAERS Safety Report 6946245-8 (Version None)
Quarter: 2010Q3

REPORT INFORMATION
  Report Type: 
  Country: None (occurrence: None)
  Receive Date: 20100824
  Receipt Date: 20100813
  Transmission Date: 20110219
  Serious: Yes (Other)
  Sender: FDA-Public Use
  Company Number: DSM-2010-01157

PATIENT
  Age: 95 Year
  Sex: Female

DRUGS (1)
  1. CAPENON (OLMESARTAN MEDOXOMIL, AMLODIPINE BESILATE) (OLMESARTAN MEDOXO [Suspect]
     Indication: HYPERTENSION
     Dosage: 1 DOSAGE FORMS (1 DOSAGE FORMS, 1 IN 1 D), ORAL
     Route: 048
     Dates: start: 20100511, end: 20100618

REACTIONS (1)
  - ATRIOVENTRICULAR BLOCK COMPLETE [None]
